FAERS Safety Report 14669923 (Version 1)
Quarter: 2018Q1

REPORT INFORMATION
  Report Type: Spontaneous
  Country: IT (occurrence: IT)
  Receive Date: 20180322
  Receipt Date: 20180322
  Transmission Date: 20180509
  Serious: Yes (Death, Other)
  Sender: FDA-Public Use
  Company Number: IT-SA-2018SA078937

PATIENT
  Sex: Male

DRUGS (9)
  1. DEXAMETHASONE. [Concomitant]
     Active Substance: DEXAMETHASONE
     Indication: PREMEDICATION
     Route: 065
  2. IRINOTECAN [Suspect]
     Active Substance: IRINOTECAN
     Route: 042
     Dates: start: 20140711, end: 20140711
  3. CARBOPLATIN. [Suspect]
     Active Substance: CARBOPLATIN
     Route: 065
  4. DOCETAXEL. [Suspect]
     Active Substance: DOCETAXEL
     Route: 065
  5. GEMCITABINE [Suspect]
     Active Substance: GEMCITABINE\GEMCITABINE HYDROCHLORIDE
     Route: 065
  6. YONDELIS [Suspect]
     Active Substance: TRABECTEDIN
     Indication: EWING^S SARCOMA
     Route: 042
     Dates: start: 20140708, end: 20140708
  7. YONDELIS [Suspect]
     Active Substance: TRABECTEDIN
     Indication: EWING^S SARCOMA
     Route: 042
     Dates: start: 20130918, end: 20130918
  8. ETOPOSIDE. [Suspect]
     Active Substance: ETOPOSIDE
     Route: 065
  9. IRINOTECAN [Suspect]
     Active Substance: IRINOTECAN
     Route: 042
     Dates: start: 20131016, end: 20131016

REACTIONS (6)
  - Transaminases increased [Fatal]
  - Off label use [Unknown]
  - Cerebrovascular accident [Fatal]
  - Hepatotoxicity [Fatal]
  - Diarrhoea [Fatal]
  - Haematotoxicity [Fatal]
